FAERS Safety Report 4896115-4 (Version None)
Quarter: 2005Q4

REPORT INFORMATION
  Report Type: 
  Country: None (occurrence: None)
  Receive Date: 20051220
  Receipt Date: 20050810
  Transmission Date: 20060501
  Serious: Yes (Other)
  Sender: FDA-Public Use
  Company Number: US143835

PATIENT
  Sex: Female
  Weight: 71.7 kg

DRUGS (4)
  1. ENBREL [Suspect]
     Indication: RHEUMATOID ARTHRITIS
     Dosage: 25 MG, 2 IN 1 WEEKS, SC
     Route: 058
     Dates: start: 20000217, end: 20050401
  2. CELECOXIB [Concomitant]
  3. ALENDRONATE SODIUM [Concomitant]
  4. RALOXIFEN HCL [Concomitant]

REACTIONS (1)
  - MULTIPLE MYELOMA [None]
